FAERS Safety Report 5698081-0 (Version None)
Quarter: 2008Q2

REPORT INFORMATION
  Report Type: 
  Country: None (occurrence: None)
  Receive Date: 20080408
  Receipt Date: 20080331
  Transmission Date: 20081010
  Serious: Yes (Other)
  Sender: FDA-Public Use
  Company Number: US-ELI_LILLY_AND_COMPANY-US200804000156

PATIENT
  Sex: Female

DRUGS (1)
  1. HUMALOG [Suspect]

REACTIONS (5)
  - BLOOD GLUCOSE INCREASED [None]
  - BRAIN NEOPLASM [None]
  - CYSTITIS [None]
  - EPILEPSY [None]
  - NEUROPATHY PERIPHERAL [None]
